FAERS Safety Report 21314785 (Version 2)
Quarter: 2022Q3

REPORT INFORMATION
  Report Type: Spontaneous
  Country: US (occurrence: US)
  Receive Date: 20220909
  Receipt Date: 20220922
  Transmission Date: 20221027
  Serious: Yes (Other)
  Sender: FDA-Public Use
  Company Number: US-PFIZER INC-PV202200059417

PATIENT
  Age: 54 Year
  Sex: Male
  Weight: 108.8 kg

DRUGS (1)
  1. PAXLOVID [Interacting]
     Active Substance: NIRMATRELVIR\RITONAVIR
     Indication: COVID-19 treatment
     Dosage: 2 DF, 2X/DAY
     Route: 048
     Dates: start: 20220527, end: 20220601

REACTIONS (4)
  - Alcohol interaction [Recovered/Resolved]
  - Alcohol poisoning [Recovered/Resolved]
  - Blood alcohol increased [Recovered/Resolved]
  - Weight decreased [Unknown]

NARRATIVE: CASE EVENT DATE: 20220101
